FAERS Safety Report 10265799 (Version 2)
Quarter: 2014Q3

REPORT INFORMATION
  Report Type: Spontaneous
  Country: US (occurrence: US)
  Receive Date: 20140627
  Receipt Date: 20140910
  Transmission Date: 20150326
  Serious: Yes (Hospitalization)
  Sender: FDA-Public Use
  Company Number: US-GLAXOSMITHKLINE-A1078088A

PATIENT
  Age: 70 Year
  Sex: Female

DRUGS (21)
  1. XANAX [Concomitant]
     Active Substance: ALPRAZOLAM
  2. ARICEPT [Concomitant]
     Active Substance: DONEPEZIL HYDROCHLORIDE
  3. LIPITOR [Concomitant]
     Active Substance: ATORVASTATIN CALCIUM
  4. IMDUR [Concomitant]
     Active Substance: ISOSORBIDE MONONITRATE
  5. DILANTIN [Concomitant]
     Active Substance: PHENYTOIN
  6. PREVACID [Concomitant]
     Active Substance: LANSOPRAZOLE
  7. QUINIDINE [Concomitant]
     Active Substance: QUINIDINE
  8. PREDNISONE. [Concomitant]
     Active Substance: PREDNISONE
  9. AMLODIPINE [Concomitant]
     Active Substance: AMLODIPINE BESYLATE
  10. LOSARTAN [Concomitant]
     Active Substance: LOSARTAN
  11. PLAVIX [Concomitant]
     Active Substance: CLOPIDOGREL BISULFATE
  12. LASIX [Concomitant]
     Active Substance: FUROSEMIDE
  13. DOXAZOSIN [Concomitant]
     Active Substance: DOXAZOSIN\DOXAZOSIN MESYLATE
  14. ZANTAC [Concomitant]
     Active Substance: RANITIDINE HYDROCHLORIDE
  15. VENTOLIN [Suspect]
     Active Substance: ALBUTEROL SULFATE
     Indication: CHRONIC OBSTRUCTIVE PULMONARY DISEASE
     Route: 055
     Dates: start: 2004
  16. PAMELOR [Concomitant]
     Active Substance: NORTRIPTYLINE HYDROCHLORIDE
  17. DUONEB [Concomitant]
     Active Substance: ALBUTEROL SULFATE\IPRATROPIUM BROMIDE
  18. PROPAFENONE. [Concomitant]
     Active Substance: PROPAFENONE
  19. ASTHAVENT [Concomitant]
  20. ADVAIR HFA [Suspect]
     Active Substance: FLUTICASONE PROPIONATE\SALMETEROL XINAFOATE
     Indication: CHRONIC OBSTRUCTIVE PULMONARY DISEASE
     Dosage: 1PUFF TWICE PER DAY
     Route: 055
     Dates: start: 2004, end: 201403
  21. ALDACTONE [Concomitant]
     Active Substance: SPIRONOLACTONE

REACTIONS (1)
  - Dyspnoea [Not Recovered/Not Resolved]

NARRATIVE: CASE EVENT DATE: 2004
